FAERS Safety Report 14036055 (Version 1)
Quarter: 2017Q4

REPORT INFORMATION
  Report Type: Spontaneous
  Country: US (occurrence: US)
  Receive Date: 20171003
  Receipt Date: 20171003
  Transmission Date: 20180321
  Serious: No
  Sender: FDA-Public Use
  Company Number: US-ROCHE-1870408

PATIENT
  Sex: Female
  Weight: 76.73 kg

DRUGS (2)
  1. ZELBORAF [Suspect]
     Active Substance: VEMURAFENIB
     Indication: MALIGNANT NIPPLE NEOPLASM
     Dosage: TK 2 TAB PO BID, ONGOING
     Route: 048
     Dates: start: 20130924
  2. ZELBORAF [Suspect]
     Active Substance: VEMURAFENIB
     Indication: BREAST CANCER

REACTIONS (1)
  - Rash morbilliform [Unknown]
